FAERS Safety Report 15506439 (Version 2)
Quarter: 2019Q2

REPORT INFORMATION
  Report Type: Other
  Country: CA (occurrence: CA)
  Receive Date: 20181016
  Receipt Date: 20190507
  Transmission Date: 20190711
  Serious: Yes (Other)
  Sender: FDA-Public Use
  Company Number: CA-DUCHESNAY INC.-2056080

PATIENT
  Sex: Female

DRUGS (12)
  1. SILDENAFIL. [Suspect]
     Active Substance: SILDENAFIL
  2. DEXPANTHENOL/ERGOCALCIFEROL/FOLIC ACID/NICOTINAMIDE/RIBOFLAVIN/THIAMIN [Suspect]
     Active Substance: VITAMINS
  3. METFORMIN [Suspect]
     Active Substance: METFORMIN HYDROCHLORIDE
  4. CHLORHEXIDINE [Suspect]
     Active Substance: CHLORHEXIDINE
  5. NIFEDIPINE. [Suspect]
     Active Substance: NIFEDIPINE
  6. SILDENAFIL. [Suspect]
     Active Substance: SILDENAFIL
  7. METHYLDOPA. [Suspect]
     Active Substance: METHYLDOPA
  8. INSULIN [Suspect]
     Active Substance: INSULIN NOS
  9. NIFEDIPINE. [Suspect]
     Active Substance: NIFEDIPINE
  10. DICLEGIS [Suspect]
     Active Substance: DOXYLAMINE SUCCINATE\PYRIDOXINE HYDROCHLORIDE
     Indication: PROPHYLAXIS
     Route: 048
  11. ACETYLSALICYLIC ACID [Suspect]
     Active Substance: ASPIRIN
  12. NIFEDIPINE. [Suspect]
     Active Substance: NIFEDIPINE

REACTIONS (1)
  - Premature delivery [Unknown]
